FAERS Safety Report 5411992-6 (Version None)
Quarter: 2007Q3

REPORT INFORMATION
  Report Type: 
  Country: None (occurrence: None)
  Receive Date: 20070809
  Receipt Date: 20070724
  Transmission Date: 20080115
  Serious: Yes (Life-Threatening, Hospitalization)
  Sender: FDA-Public Use
  Company Number: WAES 0707USA03813

PATIENT
  Age: 63 Year
  Sex: Male
  Weight: 116.5744 kg

DRUGS (6)
  1. CAP VORINOSTAT UNK [Suspect]
     Indication: BLADDER CANCER
     Dosage: 200 MG DAILY PO
     Route: 048
     Dates: start: 20070709, end: 20070723
  2. CAP VORINOSTAT UNK [Suspect]
     Indication: METASTASIS
     Dosage: 200 MG DAILY PO
     Route: 048
     Dates: start: 20070709, end: 20070723
  3. DOCETAXEL [Suspect]
     Indication: BLADDER CANCER STAGE IV
     Dosage: 75  MG DAILY IV
     Route: 042
     Dates: start: 20070713, end: 20070713
  4. FLOMAX (MORNIFLUMATE) [Concomitant]
  5. PRINIVIL [Concomitant]
  6. PYRIDOXINE HCL [Concomitant]

REACTIONS (14)
  - ATRIAL FIBRILLATION [None]
  - BACTERIA URINE IDENTIFIED [None]
  - BLOOD CREATININE INCREASED [None]
  - ESCHERICHIA INFECTION [None]
  - HYPOCALCAEMIA [None]
  - HYPOTENSION [None]
  - METABOLIC ACIDOSIS [None]
  - NEUTROPENIC SEPSIS [None]
  - PLEURAL EFFUSION [None]
  - PSEUDOMONAS INFECTION [None]
  - RESPIRATORY ACIDOSIS [None]
  - RESPIRATORY FAILURE [None]
  - SEPTIC SHOCK [None]
  - THROMBOCYTOPENIA [None]
